FAERS Safety Report 6290731-3 (Version None)
Quarter: 2009Q3

REPORT INFORMATION
  Report Type: 
  Country: None (occurrence: None)
  Receive Date: 20090730
  Receipt Date: 20090724
  Transmission Date: 20100115
  Serious: No
  Sender: FDA-Public Use
  Company Number: US-B.I. PHARMACEUTICALS,INC./RIDGEFIELD-2009-BP-08846BP

PATIENT

DRUGS (1)
  1. ATROVENT HFA [Suspect]

REACTIONS (2)
  - HYPERSENSITIVITY [None]
  - RASH [None]
